FAERS Safety Report 4472690-9 (Version None)
Quarter: 2004Q4

REPORT INFORMATION
  Report Type: 
  Country: None (occurrence: None)
  Receive Date: 20041013
  Receipt Date: 20041005
  Transmission Date: 20050328
  Serious: Yes (Death)
  Sender: FDA-Public Use
  Company Number: US-JNJFOC-20040607507

PATIENT
  Sex: Male
  Weight: 75.07 kg

DRUGS (36)
  1. NATRECOR [Suspect]
     Dosage: 0.01 UG/KG/MIN INFUSED OVER THREE HOURS
     Route: 042
  2. NATRECOR [Suspect]
     Dosage: 2 UG/KG BOLUS DOSE
     Route: 042
  3. GLUCOSAMINE CHONDROITIN [Concomitant]
  4. GLUCOSAMINE CHONDROITIN [Concomitant]
  5. GLUCOSAMINE CHONDROITIN [Concomitant]
  6. GLUCOSAMINE CHONDROITIN [Concomitant]
  7. FUROSEMIDE [Concomitant]
     Dosage: IN PM
  8. FUROSEMIDE [Concomitant]
     Dosage: IN AM
  9. NORVASC [Concomitant]
  10. ISOSORBIDE MN [Concomitant]
  11. LIPITOR [Concomitant]
  12. TOPROL LX [Concomitant]
  13. WARFARIN SODIUM [Concomitant]
     Dosage: OR AS DIRECTED
  14. SPIRONOLACTONE [Concomitant]
  15. SINGULAIR [Concomitant]
  16. AMARYL [Concomitant]
  17. ALPHAGAN P [Concomitant]
     Dosage: .15% STRENGTH
  18. VITAMIN C [Concomitant]
  19. VITAMIN A [Concomitant]
  20. VITAMIN E [Concomitant]
  21. REMERON [Concomitant]
  22. HUMULIN 70/30 [Concomitant]
     Dosage: IN PM
  23. HUMULIN 70/30 [Concomitant]
     Dosage: IN AM
  24. COD LIVER OIL [Concomitant]
  25. KCL TAB [Concomitant]
  26. MIRALAX [Concomitant]
  27. HYDRALAZINE HCL [Concomitant]
  28. METOLAZONE [Concomitant]
     Dosage: GIVEN ON DAY OF INFUSION
  29. METOLAZONE [Concomitant]
     Dosage: HELD ON DAY OF INFUSION, 24 JUNE 2004
  30. COZAAR [Concomitant]
  31. AMYTRIPTYLINE [Concomitant]
     Dosage: AT HOUR OF SLEEP
  32. EXTRA STRENGTH TYLENOL [Concomitant]
  33. ATIVAN [Concomitant]
     Dosage: AS NECESSARY AT HOUR OF SLEEP
  34. ALBUTEROL [Concomitant]
     Dosage: AS NECESSARY EVERY 4-6 HOURS BY NEBULIZER
  35. SPECTRUM SENIOR [Concomitant]
  36. LANOXIN [Concomitant]

REACTIONS (16)
  - ACUTE PULMONARY OEDEMA [None]
  - BLOOD CALCIUM DECREASED [None]
  - BLOOD CHLORIDE DECREASED [None]
  - BLOOD CREATINE DECREASED [None]
  - BLOOD GLUCOSE INCREASED [None]
  - BLOOD POTASSIUM INCREASED [None]
  - BLOOD PRESSURE SYSTOLIC INCREASED [None]
  - BLOOD SODIUM DECREASED [None]
  - BLOOD UREA INCREASED [None]
  - COLD SWEAT [None]
  - CONDITION AGGRAVATED [None]
  - CONFUSIONAL STATE [None]
  - IMPLANT SITE REACTION [None]
  - INFUSION RELATED REACTION [None]
  - INTERNATIONAL NORMALISED RATIO DECREASED [None]
  - PURULENT DISCHARGE [None]
